FAERS Safety Report 8329995-0 (Version None)
Quarter: 2012Q2

REPORT INFORMATION
  Report Type: 
  Country: None (occurrence: None)
  Receive Date: 20120502
  Receipt Date: 20120426
  Transmission Date: 20120825
  Serious: Yes (Other)
  Sender: FDA-Public Use
  Company Number: US-PFIZER INC-2012104075

PATIENT
  Sex: Female
  Weight: 81.633 kg

DRUGS (5)
  1. PRIMIDONE [Concomitant]
     Indication: CONVULSION
     Dosage: 250 MG, 2X/DAY
  2. LIPITOR [Suspect]
     Indication: BLOOD CHOLESTEROL INCREASED
     Dosage: 20 MG, DAILY
     Dates: start: 20000101
  3. DIAMOX [Concomitant]
     Indication: MACULAR DEGENERATION
     Dosage: 250 MG, 2X/DAY
  4. TOPROL-XL [Concomitant]
     Indication: CARDIAC DISORDER
     Dosage: 25 MG, DAILY
  5. DILANTIN [Concomitant]
     Indication: CONVULSION
     Dosage: 100 MG, 2X/DAY

REACTIONS (3)
  - DRUG INEFFECTIVE [None]
  - ATRIOVENTRICULAR BLOCK [None]
  - PAIN IN EXTREMITY [None]
